FAERS Safety Report 5682672-7 (Version None)
Quarter: 2008Q1

REPORT INFORMATION
  Report Type: 
  Country: None (occurrence: None)
  Receive Date: 20080327
  Receipt Date: 20080225
  Transmission Date: 20080703
  Serious: Yes (Other)
  Sender: FDA-Public Use
  Company Number: US-BRISTOL-MYERS SQUIBB COMPANY-14078737

PATIENT
  Age: 59 Year
  Sex: Female
  Weight: 106 kg

DRUGS (3)
  1. ORENCIA [Suspect]
     Indication: RHEUMATOID ARTHRITIS
     Dosage: 9TH DOSE GIVEN ON 09JAN08. AGAIN RECEIVED DOSE ON 12FEB08
     Route: 042
     Dates: start: 20070501
  2. RANITIDINE [Concomitant]
     Indication: PREMEDICATION
  3. LORATADINE [Concomitant]
     Indication: PREMEDICATION

REACTIONS (4)
  - DYSPNOEA [None]
  - OBSTRUCTIVE AIRWAYS DISORDER [None]
  - THROAT IRRITATION [None]
  - WHEEZING [None]
